FAERS Safety Report 6409035-0 (Version None)
Quarter: 2009Q4

REPORT INFORMATION
  Report Type: 
  Country: None (occurrence: None)
  Receive Date: 20091019
  Receipt Date: 20091019
  Transmission Date: 20100525
  Serious: No
  Sender: FDA-Public Use
  Company Number: None

PATIENT
  Sex: Female

DRUGS (1)
  1. VALPROIC ACID [Suspect]
     Indication: BIPOLAR I DISORDER
     Dosage: 250MG TWICE/DAY ORAL
     Route: 048
     Dates: start: 20090916, end: 20090930

REACTIONS (3)
  - GASTROOESOPHAGEAL REFLUX DISEASE [None]
  - INITIAL INSOMNIA [None]
  - POOR QUALITY SLEEP [None]
